FAERS Safety Report 12991439 (Version 1)
Quarter: 2016Q4

REPORT INFORMATION
  Report Type: Spontaneous
  Country: FR (occurrence: FR)
  Receive Date: 20161201
  Receipt Date: 20161201
  Transmission Date: 20170207
  Serious: Yes (Hospitalization)
  Sender: FDA-Public Use
  Company Number: FR-FRESENIUS KABI-FK201609395

PATIENT
  Age: 27 Year
  Sex: Female
  Weight: 58 kg

DRUGS (2)
  1. CLINDAMYCIN KABI (NOT SPECIFIED) [Suspect]
     Active Substance: CLINDAMYCIN PHOSPHATE
     Indication: PERIODONTITIS
     Route: 042
     Dates: start: 201607, end: 201607
  2. CLINDAMYCIN KABI (NOT SPECIFIED) [Suspect]
     Active Substance: CLINDAMYCIN PHOSPHATE
     Indication: ESCHERICHIA URINARY TRACT INFECTION

REACTIONS (2)
  - Gastrointestinal disorder [Recovered/Resolved]
  - Rash pruritic [Recovered/Resolved]

NARRATIVE: CASE EVENT DATE: 201607
